FAERS Safety Report 9387960 (Version 3)
Quarter: 2013Q4

REPORT INFORMATION
  Report Type: Spontaneous
  Country: DE (occurrence: DE)
  Receive Date: 20130708
  Receipt Date: 20131217
  Transmission Date: 20140711
  Serious: Yes (Other)
  Sender: FDA-Public Use
  Company Number: DE-GLAXOSMITHKLINE-D0080386A

PATIENT
  Age: 49 Year
  Sex: Female
  Weight: 80 kg

DRUGS (4)
  1. BENLYSTA [Suspect]
     Indication: SYSTEMIC LUPUS ERYTHEMATOSUS
     Dosage: 800MG EVERY 28 DAYS
     Route: 042
     Dates: start: 20130201, end: 20130701
  2. MTX [Concomitant]
     Indication: SYSTEMIC LUPUS ERYTHEMATOSUS
     Dosage: 15MG WEEKLY
     Route: 065
     Dates: start: 2009
  3. QUENSYL [Concomitant]
     Indication: SYSTEMIC LUPUS ERYTHEMATOSUS
     Dosage: 400MG PER DAY
     Route: 048
     Dates: start: 2009
  4. URSOFALK [Concomitant]
     Indication: BILIARY CIRRHOSIS PRIMARY
     Dosage: 500MG PER DAY
     Route: 048
     Dates: start: 2007

REACTIONS (1)
  - Ulcerative keratitis [Not Recovered/Not Resolved]
